FAERS Safety Report 17851455 (Version 1)
Quarter: 2020Q2

REPORT INFORMATION
  Report Type: Report from Study
  Country: US (occurrence: US)
  Receive Date: 20200602
  Receipt Date: 20200602
  Transmission Date: 20200714
  Serious: Yes (Other)
  Sender: FDA-Public Use
  Company Number: PHHO2016US002467

PATIENT
  Sex: Female

DRUGS (3)
  1. ALEMTUZUMAB [Concomitant]
     Active Substance: ALEMTUZUMAB
     Indication: MYELODYSPLASTIC SYNDROME
     Route: 065
  2. SB497115 [Suspect]
     Active Substance: ELTROMBOPAG
     Indication: MYELODYSPLASTIC SYNDROME
     Dosage: 50 MG, QD
     Route: 048
     Dates: start: 20150906
  3. SB497115 [Suspect]
     Active Substance: ELTROMBOPAG
     Dosage: 150 MG, QD
     Route: 048
     Dates: start: 20151031, end: 20151222

REACTIONS (1)
  - Bone marrow reticulin fibrosis [Unknown]

NARRATIVE: CASE EVENT DATE: 20160106
